FAERS Safety Report 20389507 (Version 1)
Quarter: 2022Q1

REPORT INFORMATION
  Report Type: Spontaneous
  Country: US (occurrence: US)
  Receive Date: 20220128
  Receipt Date: 20220128
  Transmission Date: 20220423
  Serious: No
  Sender: FDA-Public Use
  Company Number: US-ALLERGAN-2111829US

PATIENT
  Age: 27 Year
  Sex: Female
  Weight: 58.957 kg

DRUGS (4)
  1. BOTOX COSMETIC [Suspect]
     Active Substance: ONABOTULINUMTOXINA
     Indication: Skin wrinkling
     Dosage: 58 UNITS, SINGLE
     Dates: start: 20210305, end: 20210305
  2. LO LOESTRIN FE [Concomitant]
     Active Substance: ETHINYL ESTRADIOL\NORETHINDRONE ACETATE
     Indication: Contraception
     Dosage: 1 DF, QD
     Dates: start: 2018
  3. Natrelle breast implants [Concomitant]
     Dosage: UNK
     Dates: start: 20210126
  4. Natrelle breast implants [Concomitant]
     Dosage: UNK
     Dates: start: 20210126

REACTIONS (2)
  - Drug ineffective [Unknown]
  - Suspected product quality issue [Unknown]

NARRATIVE: CASE EVENT DATE: 20210305
